FAERS Safety Report 6434879-9 (Version None)
Quarter: 2009Q4

REPORT INFORMATION
  Report Type: 
  Country: None (occurrence: None)
  Receive Date: 20091110
  Receipt Date: 20091109
  Transmission Date: 20100525
  Serious: Yes (Other)
  Sender: FDA-Public Use
  Company Number: DE-EISAI INC.-E2020-05492-SOL-DE

PATIENT
  Sex: Female

DRUGS (1)
  1. ARICEPT [Suspect]
     Route: 048

REACTIONS (1)
  - COMA [None]
